FAERS Safety Report 9330791 (Version 1)
Quarter: 2013Q2

REPORT INFORMATION
  Report Type: Spontaneous
  Country: CA (occurrence: CA)
  Receive Date: 20130605
  Receipt Date: 20130605
  Transmission Date: 20140414
  Serious: Yes (Other)
  Sender: FDA-Public Use
  Company Number: CA-AMGEN-CANSP2011037972

PATIENT
  Age: 77 Year
  Sex: Female

DRUGS (13)
  1. ENBREL [Suspect]
     Indication: PSORIATIC ARTHROPATHY
     Dosage: 50 MG, QWK
     Route: 065
     Dates: start: 20101025
  2. ANTIBIOTICS [Suspect]
     Dosage: UNK
  3. PANTOLOC                           /01263202/ [Concomitant]
     Dosage: UNK
  4. PREDNISONE [Concomitant]
     Dosage: 2.5 MG, QD
  5. WELLBUTRIN                         /00700502/ [Concomitant]
     Dosage: UNK
  6. HYDROCHLOROTHIAZIDE [Concomitant]
     Dosage: 25 MG, UNK
  7. CIPRALEX                           /01588502/ [Concomitant]
     Dosage: UNK
  8. BABY ASPIRIN [Concomitant]
     Dosage: UNK
  9. SYNTHROID [Concomitant]
     Dosage: UNK
  10. ACTONEL [Concomitant]
     Indication: OSTEOPOROSIS
     Dosage: UNK
  11. AVAPRO [Concomitant]
     Dosage: 300 MG, UNK
  12. FENTANYL [Concomitant]
     Dosage: PATCH 25 MU, UNK
  13. PERCOCET                           /00446701/ [Concomitant]
     Dosage: UNK

REACTIONS (5)
  - Cystitis [Not Recovered/Not Resolved]
  - Rheumatoid arthritis [Not Recovered/Not Resolved]
  - Drug hypersensitivity [Recovered/Resolved]
  - Gastrointestinal disorder [Unknown]
  - Cystitis escherichia [Recovered/Resolved]
